FAERS Safety Report 15969420 (Version 1)
Quarter: 2019Q1

REPORT INFORMATION
  Report Type: Spontaneous
  Country: US (occurrence: US)
  Receive Date: 20190215
  Receipt Date: 20190215
  Transmission Date: 20190418
  Serious: Yes (Other)
  Sender: FDA-Public Use
  Company Number: US-FRESENIUS KABI-FK201901660

PATIENT
  Age: 34 Year
  Sex: Female

DRUGS (6)
  1. AMIODARONE HCL (MANUFACTURER UNKNOWN) [Suspect]
     Active Substance: AMIODARONE HYDROCHLORIDE
     Dosage: UNKNOWN
     Route: 041
  2. AMIODARONE HCL (MANUFACTURER UNKNOWN) [Suspect]
     Active Substance: AMIODARONE HYDROCHLORIDE
     Route: 042
  3. ADENOSINE. [Concomitant]
     Active Substance: ADENOSINE
     Indication: VENTRICULAR TACHYCARDIA
     Dosage: UNKNOWN
     Route: 065
  4. ETOMIDATE. [Concomitant]
     Active Substance: ETOMIDATE
     Indication: SEDATIVE THERAPY
     Dosage: UNKNOWN
     Route: 065
  5. AMIODARONE HCL (MANUFACTURER UNKNOWN) [Suspect]
     Active Substance: AMIODARONE HYDROCHLORIDE
     Indication: VENTRICULAR TACHYCARDIA
     Route: 040
  6. FENTANYL. [Concomitant]
     Active Substance: FENTANYL
     Indication: SEDATIVE THERAPY
     Dosage: UNKNOWN
     Route: 065

REACTIONS (3)
  - Unmasking of previously unidentified disease [Recovering/Resolving]
  - Atrioventricular block second degree [Recovering/Resolving]
  - Brugada syndrome [Recovering/Resolving]
